FAERS Safety Report 10087249 (Version 4)
Quarter: 2020Q3

REPORT INFORMATION
  Report Type: Report from Study
  Country: IL (occurrence: IL)
  Receive Date: 20140418
  Receipt Date: 20140709
  Transmission Date: 20201104
  Serious: Yes (Hospitalization, Other)
  Sender: FDA-Public Use
  Company Number: PHHY2014IL043915

PATIENT
  Age: 44 Year
  Sex: Female

DRUGS (23)
  1. OXALIPLATIN. [Suspect]
     Active Substance: OXALIPLATIN
     Dosage: 166 MG, QW2
     Route: 042
     Dates: start: 20140324
  2. FOLINIC ACID [Suspect]
     Active Substance: LEUCOVORIN
     Indication: GASTROOESOPHAGEAL CANCER
     Dosage: UNK
     Route: 042
     Dates: start: 20140226
  3. ONARTUZUMAB. [Suspect]
     Active Substance: ONARTUZUMAB
     Indication: GASTROOESOPHAGEAL CANCER
     Route: 042
     Dates: start: 20140226
  4. SODIUM CHLORIDE. [Concomitant]
     Active Substance: SODIUM CHLORIDE
     Indication: CONSTIPATION
     Dosage: 1500 ML, UNK
     Route: 042
     Dates: start: 20140306, end: 20140306
  5. CANNABIS [Concomitant]
     Active Substance: CANNABIS SATIVA SUBSP. INDICA TOP
     Indication: ABDOMINAL PAIN
     Dates: start: 201402
  6. 5?FLUOROURACIL [Suspect]
     Active Substance: FLUOROURACIL
     Dosage: 780 MG, QW2
     Route: 040
     Dates: start: 20140324
  7. MORPHINE [Concomitant]
     Active Substance: MORPHINE
     Dosage: 30 MG, UNK
     Route: 048
     Dates: start: 20140302
  8. SODIUM CHLORIDE. [Concomitant]
     Active Substance: SODIUM CHLORIDE
     Indication: FATIGUE
     Dosage: 500 ML, UNK
     Route: 042
     Dates: start: 20140329, end: 20140329
  9. OXALIPLATIN. [Suspect]
     Active Substance: OXALIPLATIN
     Indication: GASTROOESOPHAGEAL CANCER
     Route: 042
     Dates: start: 20140226
  10. FENTANYL. [Concomitant]
     Active Substance: FENTANYL
     Indication: ABDOMINAL PAIN
     Route: 062
  11. FERRITIN [Concomitant]
     Active Substance: FERRITIN
     Indication: ANAEMIA
     Route: 048
  12. FOLINIC ACID [Suspect]
     Active Substance: LEUCOVORIN
     Dosage: 780 MG, QW2
     Route: 042
     Dates: start: 20140324
  13. MORPHINE [Concomitant]
     Active Substance: MORPHINE
     Indication: PAIN
     Dosage: 8 MG, UNK
     Route: 042
     Dates: start: 20140302, end: 20140302
  14. AVILAC [Concomitant]
     Indication: CONSTIPATION
     Dosage: 30 ML, UNK
     Route: 048
     Dates: start: 20140329
  15. PERCOCET [Concomitant]
     Active Substance: ACETAMINOPHEN\OXYCODONE HYDROCHLORIDE
     Indication: ABDOMINAL PAIN
     Route: 048
  16. ZOFRAN [Concomitant]
     Active Substance: ONDANSETRON HYDROCHLORIDE
     Indication: NAUSEA
     Dates: start: 20140228
  17. DIPYRONE [Concomitant]
     Active Substance: DIPYRONE
     Indication: ABDOMINAL PAIN
     Route: 048
     Dates: start: 20140225
  18. SETRON [Concomitant]
     Dosage: 1 MG, UNK
     Route: 042
     Dates: start: 20140324
  19. 5?FLUOROURACIL [Suspect]
     Active Substance: FLUOROURACIL
     Indication: GASTROOESOPHAGEAL CANCER
     Dosage: UNK
     Route: 040
     Dates: start: 20140226
  20. DEXACORT [Concomitant]
     Active Substance: DEXAMETHASONE SODIUM PHOSPHATE
     Dosage: 12 MG, UNK
     Route: 042
     Dates: start: 20140324
  21. 5?FLUOROURACIL [Suspect]
     Active Substance: FLUOROURACIL
     Dosage: UNK
     Route: 042
     Dates: start: 20140226
  22. 5?FLUOROURACIL [Suspect]
     Active Substance: FLUOROURACIL
     Dosage: 4700 MG, QW2
     Route: 042
     Dates: start: 20140324
  23. ONARTUZUMAB. [Suspect]
     Active Substance: ONARTUZUMAB
     Route: 042
     Dates: start: 20140324

REACTIONS (4)
  - Dyspnoea [Unknown]
  - Oedema peripheral [Unknown]
  - Pulmonary embolism [Recovered/Resolved]
  - Pyrexia [Unknown]

NARRATIVE: CASE EVENT DATE: 20140329
